FAERS Safety Report 9390706 (Version 1)
Quarter: 2013Q3

REPORT INFORMATION
  Report Type: Spontaneous
  Country: US (occurrence: None)
  Receive Date: 20130705
  Receipt Date: 20130705
  Transmission Date: 20140515
  Serious: Yes (Death)
  Sender: FDA-Public Use
  Company Number: None

PATIENT
  Age: 65 Year
  Sex: Male
  Weight: 71.9 kg

DRUGS (17)
  1. ZIV-AFLIBERCEPT [Suspect]
     Indication: OESOPHAGEAL CANCER METASTATIC
     Route: 042
     Dates: start: 20130108
  2. AMOXICILLIN [Concomitant]
  3. ATENOLOL [Concomitant]
  4. BACLOFEN [Concomitant]
  5. COLACE [Concomitant]
  6. COMPAZINE [Concomitant]
  7. DECADRON [Concomitant]
  8. DOXAZOSIN [Concomitant]
  9. ENOXAPARIN [Concomitant]
  10. LOMOTIL [Concomitant]
  11. LORAZEPAM [Concomitant]
  12. OXYCODONE [Concomitant]
  13. PROTONIX [Concomitant]
  14. REMERON [Concomitant]
  15. SENNA [Concomitant]
  16. ZOFRAN [Concomitant]
  17. ZOLPIDEM [Concomitant]

REACTIONS (4)
  - Cerebellar haemorrhage [None]
  - Neurological decompensation [None]
  - Brain stem syndrome [None]
  - Post procedural complication [None]
